FAERS Safety Report 12763402 (Version 1)
Quarter: 2016Q3

REPORT INFORMATION
  Report Type: Spontaneous
  Country: US (occurrence: US)
  Receive Date: 20160919
  Receipt Date: 20160919
  Transmission Date: 20161109
  Serious: Yes (Disabling)
  Sender: FDA-Public Use
  Company Number: None

PATIENT
  Age: 66 Year
  Sex: Female
  Weight: 78.3 kg

DRUGS (5)
  1. ATENOLOL. [Concomitant]
     Active Substance: ATENOLOL
  2. TROPICAMIDE. [Suspect]
     Active Substance: TROPICAMIDE
     Indication: OPHTHALMOLOGICAL EXAMINATION
     Dosage: OTHER STRENGTH:;OTHER DOSE:;OTHER FREQUENCY:ONCE FOR EXAM;OTHER ROUTE:
     Route: 047
     Dates: start: 20160912, end: 20160912
  3. FLUORESCEIN [Suspect]
     Active Substance: FLUORESCEIN
     Indication: OPHTHALMOLOGICAL EXAMINATION
     Dosage: OTHER STRENGTH:;OTHER DOSE:;OTHER FREQUENCY:ONCE;OTHER ROUTE:
     Route: 047
     Dates: start: 20160912, end: 20160912
  4. ASPIRIN. [Concomitant]
     Active Substance: ASPIRIN
  5. DIAZEPAM. [Concomitant]
     Active Substance: DIAZEPAM

REACTIONS (5)
  - Eye pain [None]
  - Ocular discomfort [None]
  - Vision blurred [None]
  - Photosensitivity reaction [None]
  - Myopia [None]

NARRATIVE: CASE EVENT DATE: 20160912
